FAERS Safety Report 10302056 (Version 1)
Quarter: 2014Q3

REPORT INFORMATION
  Report Type: Spontaneous
  Country: US (occurrence: None)
  Receive Date: 20140709
  Receipt Date: 20140709
  Transmission Date: 20150326
  Serious: No
  Sender: FDA-Public Use
  Company Number: None

PATIENT
  Age: 56 Year
  Sex: Female
  Weight: 68.04 kg

DRUGS (1)
  1. LEXAPRO [Suspect]
     Active Substance: ESCITALOPRAM OXALATE
     Indication: PANIC DISORDER
     Route: 048

REACTIONS (7)
  - Head discomfort [None]
  - Nausea [None]
  - Gastrointestinal pain [None]
  - Chills [None]
  - Hyperhidrosis [None]
  - Frequent bowel movements [None]
  - Influenza [None]
